FAERS Safety Report 8991419 (Version 1)
Quarter: 2012Q4

REPORT INFORMATION
  Report Type: 
  Country: ES (occurrence: ES)
  Receive Date: 20121229
  Receipt Date: 20121229
  Transmission Date: 20130627
  Serious: Yes (Hospitalization)
  Sender: FDA-Public Use
  Company Number: ES-AMGEN-ESPSP2012082713

PATIENT
  Sex: Female

DRUGS (1)
  1. PROLIA [Suspect]
     Indication: OSTEOPOROSIS
     Dosage: UNK
     Dates: start: 201212

REACTIONS (3)
  - Ileus paralytic [Unknown]
  - Coagulopathy [Unknown]
  - Haemorrhage [Unknown]
